FAERS Safety Report 24032484 (Version 1)
Quarter: 2024Q3

REPORT INFORMATION
  Report Type: Spontaneous
  Country: CN (occurrence: CN)
  Receive Date: 20240701
  Receipt Date: 20240701
  Transmission Date: 20241017
  Serious: Yes (Hospitalization)
  Sender: BEIGENE
  Company Number: CN-BEIGENE-BGN-2024-009655

PATIENT

DRUGS (6)
  1. TISLELIZUMAB [Suspect]
     Active Substance: TISLELIZUMAB
     Indication: Squamous cell carcinoma of lung
     Dosage: 200 MILLIGRAM
     Route: 041
     Dates: start: 20240517
  2. TISLELIZUMAB [Suspect]
     Active Substance: TISLELIZUMAB
     Dosage: 200 MILLIGRAM
     Dates: start: 20240616
  3. CARBOPLATIN [Suspect]
     Active Substance: CARBOPLATIN
     Indication: Squamous cell carcinoma of lung
     Dosage: 0.5 GRAM
     Route: 041
     Dates: start: 20240518
  4. CARBOPLATIN [Suspect]
     Active Substance: CARBOPLATIN
     Dosage: 0.5 GRAM
     Route: 041
     Dates: start: 20240617
  5. PACLITAXEL [Suspect]
     Active Substance: PACLITAXEL
     Indication: Squamous cell carcinoma of lung
     Dosage: 400 MILLIGRAM
     Route: 041
     Dates: start: 20240518
  6. PACLITAXEL [Suspect]
     Active Substance: PACLITAXEL
     Dosage: 400 MILLIGRAM
     Route: 041
     Dates: start: 20240617

REACTIONS (1)
  - Hepatic function abnormal [Recovering/Resolving]

NARRATIVE: CASE EVENT DATE: 20240611
